FAERS Safety Report 9659477 (Version 2)
Quarter: 2014Q1

REPORT INFORMATION
  Report Type: Report from Study
  Country: AU (occurrence: AU)
  Receive Date: 20131031
  Receipt Date: 20140131
  Transmission Date: 20141002
  Serious: Yes (Hospitalization)
  Sender: FDA-Public Use
  Company Number: PHHY2013AU122514

PATIENT
  Age: 67 Year
  Sex: Female

DRUGS (10)
  1. ACLASTA [Suspect]
     Dosage: 5 MG, UNK
     Route: 042
     Dates: start: 20110916
  2. ACLASTA [Suspect]
     Dosage: 5 MG, UNK
     Route: 042
     Dates: start: 20121015
  3. DIABEX [Concomitant]
     Dosage: 1 G, BID
     Route: 048
  4. DIAMICRON [Concomitant]
     Dosage: 60 MG, DAILY
     Route: 048
  5. DIGOXIN [Concomitant]
     Dosage: 62.5 UG, UNK
     Route: 048
  6. MAGMIN [Concomitant]
     Dosage: 37.4 MG, UNK
     Route: 048
  7. METOPROLOL [Concomitant]
     Dosage: 0.5 DF, BID
     Route: 048
  8. NORVASC [Concomitant]
     Dosage: 5 MG, DAILY
  9. THYROXIN [Concomitant]
     Dosage: 150 UG, DAILY
  10. WARFARIN [Concomitant]
     Dosage: UNK UKN, UNK

REACTIONS (2)
  - Fall [Recovered/Resolved]
  - Wrist fracture [Recovered/Resolved]
